FAERS Safety Report 5002367-2 (Version None)
Quarter: 2006Q2

REPORT INFORMATION
  Report Type: 
  Country: None (occurrence: None)
  Receive Date: 20060512
  Receipt Date: 20060424
  Transmission Date: 20061013
  Serious: Yes (Other)
  Sender: FDA-Public Use
  Company Number: NL200604004164

PATIENT
  Age: 69 Year
  Sex: Male
  Weight: 81 kg

DRUGS (3)
  1. GEMZAR [Suspect]
     Indication: NON-SMALL CELL LUNG CANCER
     Dosage: OTHER
     Route: 050
     Dates: start: 20060410, end: 20060410
  2. GEMZAR [Suspect]
     Indication: NON-SMALL CELL LUNG CANCER
     Dosage: OTHER
     Route: 050
     Dates: start: 20060418, end: 20060418
  3. CISPLATIN [Concomitant]

REACTIONS (2)
  - ECZEMA [None]
  - RASH [None]
